FAERS Safety Report 16186448 (Version 2)
Quarter: 2019Q2

REPORT INFORMATION
  Report Type: Report from Study
  Country: DE (occurrence: DE)
  Receive Date: 20190411
  Receipt Date: 20190429
  Transmission Date: 20190711
  Serious: Yes (Hospitalization)
  Sender: FDA-Public Use
  Company Number: DE-ELI_LILLY_AND_COMPANY-DE201904000111

PATIENT
  Age: 75 Year
  Sex: Female

DRUGS (2)
  1. TERIPARATIDE [Suspect]
     Active Substance: TERIPARATIDE
     Indication: OSTEOPOROSIS
     Dosage: UNK, DAILY
     Route: 058
     Dates: start: 20190308
  2. TERIPARATIDE [Suspect]
     Active Substance: TERIPARATIDE
     Dosage: UNK, DAILY
     Route: 058

REACTIONS (9)
  - Cough [Unknown]
  - Spinal fracture [Not Recovered/Not Resolved]
  - Pain [Unknown]
  - Sneezing [Unknown]
  - Myalgia [Not Recovered/Not Resolved]
  - Blood calcium increased [Not Recovered/Not Resolved]
  - Renal failure [Unknown]
  - Chondropathy [Unknown]
  - Dyspnoea [Not Recovered/Not Resolved]
